FAERS Safety Report 13783822 (Version 1)
Quarter: 2017Q3

REPORT INFORMATION
  Report Type: Spontaneous
  Country: FR (occurrence: FR)
  Receive Date: 20170724
  Receipt Date: 20170724
  Transmission Date: 20171127
  Serious: Yes (Hospitalization)
  Sender: FDA-Public Use
  Company Number: FR-BAYER-2017-135225

PATIENT
  Age: 29 Year
  Sex: Female

DRUGS (1)
  1. MIRENA [Suspect]
     Active Substance: LEVONORGESTREL
     Indication: CONTRACEPTION
     Dosage: 20 MCG/24HR, CONT
     Route: 015
     Dates: start: 2003, end: 2015

REACTIONS (18)
  - Pain in extremity [Unknown]
  - Musculoskeletal chest pain [Unknown]
  - Anxiety [Unknown]
  - Abdominal pain [Unknown]
  - Weight increased [Unknown]
  - Hypersensitivity [Unknown]
  - Depression [Recovering/Resolving]
  - Breast pain [Unknown]
  - Epilepsy [Recovered/Resolved]
  - Diffuse alopecia [Unknown]
  - Sleep disorder [Unknown]
  - Vulvitis [Unknown]
  - Arthralgia [Unknown]
  - Libido decreased [Unknown]
  - Vision blurred [Unknown]
  - Back pain [Unknown]
  - Dermatitis psoriasiform [Recovering/Resolving]
  - Acne [Unknown]

NARRATIVE: CASE EVENT DATE: 2004
